FAERS Safety Report 4655121-5 (Version None)
Quarter: 2005Q2

REPORT INFORMATION
  Report Type: 
  Country: None (occurrence: None)
  Receive Date: 20050505
  Receipt Date: 20050418
  Transmission Date: 20051028
  Serious: Yes (Death)
  Sender: FDA-Public Use
  Company Number: GBWYE594918APR05

PATIENT
  Age: 78 Year
  Sex: Male

DRUGS (11)
  1. MONOCOR (BISOPROLOL, TABLET, 0) [Suspect]
  2. ASPIRIN [Suspect]
  3. CO-CODAMOL (CODEINE PHOSPHATE/PARACETAMOL) [Suspect]
  4. FUROSEMIDE [Suspect]
  5. ISOSORBIDE MONONITRATE [Suspect]
  6. NICORANDIL (NICORANDIL) [Suspect]
  7. PARIET (RABEPRAZOLE) [Suspect]
  8. SALBUTAMOL (SALBUTAMOL) [Suspect]
  9. SERETIDE (SALMETEROL/FLUTICASONE) [Suspect]
  10. SIMVASTATIN [Suspect]
  11. SPIRIVA [Suspect]
     Indication: CHRONIC OBSTRUCTIVE PULMONARY DISEASE
     Route: 055
     Dates: start: 20040201

REACTIONS (2)
  - LEFT VENTRICULAR FAILURE [None]
  - MYOCARDIAL ISCHAEMIA [None]
